FAERS Safety Report 16526912 (Version 3)
Quarter: 2019Q3

REPORT INFORMATION
  Report Type: Report from Study
  Country: CA (occurrence: CA)
  Receive Date: 20190703
  Receipt Date: 20190716
  Transmission Date: 20191004
  Serious: Yes (Hospitalization)
  Sender: FDA-Public Use
  Company Number: CA-TAIHO ONCOLOGY  INC-EU-2019-02004

PATIENT
  Sex: Male
  Weight: 63.5 kg

DRUGS (27)
  1. BUSCOPAN [Concomitant]
     Active Substance: BUTYLSCOPOLAMINE BROMIDE
     Route: 058
     Dates: start: 20190624
  2. SMOFLIPID [Concomitant]
     Active Substance: FISH OIL\MEDIUM-CHAIN TRIGLYCERIDES\OLIVE OIL\SOYBEAN OIL
     Route: 042
     Dates: start: 20190621
  3. DILAUDID-HP [Concomitant]
     Active Substance: HYDROMORPHONE HYDROCHLORIDE
     Route: 058
     Dates: start: 20190618
  4. DULCOLAX NOS [Concomitant]
     Active Substance: BISACODYL OR DOCUSATE SODIUM
     Dosage: EVERY 3 DAYS PRN
     Route: 054
     Dates: start: 20190527
  5. SODIUM CHLORIDE. [Concomitant]
     Active Substance: SODIUM CHLORIDE
     Route: 042
     Dates: start: 20190625
  6. ZYPREXA [Concomitant]
     Active Substance: OLANZAPINE
     Indication: ANXIETY
     Route: 058
     Dates: start: 20190527, end: 20190529
  7. DECADRON [Concomitant]
     Active Substance: DEXAMETHASONE
     Dosage: SUPPLIED AS 4 MG/ML, 2ML EVERY MORNING AND NOON
     Route: 058
     Dates: start: 20190616
  8. NOZINAN [Concomitant]
     Active Substance: LEVOMEPROMAZINE
     Indication: NAUSEA
     Dosage: PRN
     Route: 058
     Dates: start: 20190621
  9. ZOFRAN ODT [Concomitant]
     Active Substance: ONDANSETRON HYDROCHLORIDE
     Dosage: MULTIPLE ROUTE ORDER, GIVE ONE ROUTE ONLY
     Route: 048
     Dates: start: 20190608
  10. ZYPREXA ZYDIS [Concomitant]
     Active Substance: OLANZAPINE
     Indication: ANXIETY
     Route: 058
     Dates: start: 20190527, end: 20190529
  11. CEFTRIAXONE. [Concomitant]
     Active Substance: CEFTRIAXONE
     Route: 042
     Dates: start: 20190625
  12. INNOHEP [Concomitant]
     Active Substance: TINZAPARIN SODIUM
     Dosage: 0.6ML DAILY AT 18:00 HRS
     Route: 058
     Dates: start: 20190620
  13. ZYPREXA ZYDIS [Concomitant]
     Active Substance: OLANZAPINE
     Indication: NAUSEA
  14. MELATONIN [Concomitant]
     Active Substance: MELATONIN
     Dosage: AT BED TIME
     Route: 048
     Dates: start: 20190527
  15. LONSURF [Suspect]
     Active Substance: TIPIRACIL HYDROCHLORIDE\TRIFLURIDINE
     Indication: COLORECTAL CANCER METASTATIC
     Dosage: CURRENT CYCLE 1
     Route: 048
     Dates: start: 20190227, end: 2019
  16. ZOFRAN [Concomitant]
     Active Substance: ONDANSETRON HYDROCHLORIDE
     Dosage: MULTIPLE ROUTE ORDER, GIVE ONE ROUTE ONLY
     Route: 058
     Dates: start: 20190527
  17. NYADERM [Concomitant]
     Dosage: 5 ML SWISH AND SPIT FOUR TIMES A DAY FOR 7 DAYS
     Route: 048
     Dates: start: 20190621
  18. METRONIDAZOLE. [Concomitant]
     Active Substance: METRONIDAZOLE
     Dosage: IN 100ML OF DILUENT
     Route: 042
     Dates: start: 20190625
  19. TWEED CANNABIS OIL [Concomitant]
     Dosage: PRN AT BEDTIME
     Route: 048
     Dates: start: 20190625
  20. ZYPREXA [Concomitant]
     Active Substance: OLANZAPINE
     Indication: NAUSEA
  21. REMERON RD [Concomitant]
     Active Substance: MIRTAZAPINE
     Dosage: 0.5 TAB ORAL AT BED TIME
     Route: 048
  22. NOZINAN [Concomitant]
     Active Substance: LEVOMEPROMAZINE
     Indication: AGITATION
  23. LAX-A-DAY [Concomitant]
     Dosage: PRN
     Dates: start: 20190527
  24. ATIVAN [Concomitant]
     Active Substance: LORAZEPAM
     Indication: ANXIETY
     Route: 060
     Dates: start: 20190527
  25. PEPCID [Concomitant]
     Active Substance: FAMOTIDINE
     Route: 058
     Dates: start: 20190616
  26. NOZINAN [Concomitant]
     Active Substance: LEVOMEPROMAZINE
     Indication: ANXIETY
  27. DILAUDID-HP [Concomitant]
     Active Substance: HYDROMORPHONE HYDROCHLORIDE
     Route: 058
     Dates: start: 20190618

REACTIONS (3)
  - Pain [Not Recovered/Not Resolved]
  - General symptom [Unknown]
  - Mental disorder [Not Recovered/Not Resolved]

NARRATIVE: CASE EVENT DATE: 2019
